FAERS Safety Report 6068584-8 (Version None)
Quarter: 2009Q1

REPORT INFORMATION
  Report Type: 
  Country: None (occurrence: None)
  Receive Date: 20090203
  Receipt Date: 20090112
  Transmission Date: 20090719
  Serious: Yes (Death, Hospitalization, Other)
  Sender: FDA-Public Use
  Company Number: 55959

PATIENT
  Age: 68 Year
  Sex: Male

DRUGS (1)
  1. CISPLATIN [Suspect]
     Indication: OESOPHAGEAL CARCINOMA
     Dosage: SEE IMAGE

REACTIONS (3)
  - ACUTE HEPATIC FAILURE [None]
  - HERPES SIMPLEX HEPATITIS [None]
  - RENAL FAILURE [None]
